FAERS Safety Report 7328901-5 (Version None)
Quarter: 2011Q1

REPORT INFORMATION
  Report Type: 
  Country: None (occurrence: None)
  Receive Date: 20110225
  Receipt Date: 20110225
  Transmission Date: 20110831
  Serious: No
  Sender: FDA-Public Use
  Company Number: None

PATIENT
  Sex: Female
  Weight: 97.4 kg

DRUGS (3)
  1. ERBITUX [Suspect]
     Dosage: 492 MG
     Dates: end: 20101228
  2. TAXOL [Suspect]
     Dosage: 295 MG
     Dates: end: 20101228
  3. CARBOPLATIN [Suspect]
     Dosage: 900 MG
     Dates: end: 20101228

REACTIONS (1)
  - PLATELET COUNT DECREASED [None]
